FAERS Safety Report 12818993 (Version 1)
Quarter: 2016Q4

REPORT INFORMATION
  Report Type: Spontaneous
  Country: FR (occurrence: FR)
  Receive Date: 20161006
  Receipt Date: 20161006
  Transmission Date: 20170207
  Serious: Yes (Other)
  Sender: FDA-Public Use
  Company Number: FR-GLAXOSMITHKLINE-FR2016GSK142605

PATIENT
  Age: 51 Year

DRUGS (1)
  1. NUCALA [Suspect]
     Active Substance: MEPOLIZUMAB
     Indication: ASTHMA
     Dosage: 100 MG EVERY 4 WEEKS
     Dates: start: 201601

REACTIONS (2)
  - Inappropriate schedule of drug administration [Unknown]
  - Muscle rupture [Not Recovered/Not Resolved]
